FAERS Safety Report 8162116-6 (Version None)
Quarter: 2012Q1

REPORT INFORMATION
  Report Type: 
  Country: None (occurrence: None)
  Receive Date: 20120224
  Receipt Date: 20111019
  Transmission Date: 20120608
  Serious: No
  Sender: FDA-Public Use
  Company Number: US-BRISTOL-MYERS SQUIBB COMPANY-16180713

PATIENT
  Age: 67 Year
  Sex: Female

DRUGS (2)
  1. METFORMIN HCL [Suspect]
     Indication: DIABETES MELLITUS
     Dates: start: 20110901
  2. LANTUS [Suspect]
     Indication: DIABETES MELLITUS
     Dosage: LANTUS SOLOSTAR38 UNITS NOS PARENTRAL INJ SOLUN 100IU/ML
     Route: 058
     Dates: start: 20110901

REACTIONS (1)
  - BLOOD GLUCOSE INCREASED [None]
